FAERS Safety Report 25301763 (Version 2)
Quarter: 2025Q2

REPORT INFORMATION
  Report Type: Spontaneous
  Country: US (occurrence: US)
  Receive Date: 20250512
  Receipt Date: 20250521
  Transmission Date: 20250717
  Serious: No
  Sender: ELI LILLY AND COMPANY
  Company Number: US-ELI_LILLY_AND_COMPANY-US202505006328

PATIENT
  Age: 65 Year
  Sex: Female

DRUGS (1)
  1. TALTZ [Suspect]
     Active Substance: IXEKIZUMAB
     Indication: Product used for unknown indication
     Route: 065

REACTIONS (5)
  - Urinary tract infection [Not Recovered/Not Resolved]
  - Incorrect dose administered [Unknown]
  - Psoriasis [Not Recovered/Not Resolved]
  - Fibromyalgia [Unknown]
  - Stress [Unknown]
